FAERS Safety Report 17219156 (Version 4)
Quarter: 2020Q1

REPORT INFORMATION
  Report Type: Report from Study
  Country: US (occurrence: US)
  Receive Date: 20191231
  Receipt Date: 20200227
  Transmission Date: 20200409
  Serious: Yes (Other)
  Sender: FDA-Public Use
  Company Number: US-BRISTOL-MYERS SQUIBB COMPANY-BMS-2019-125355

PATIENT
  Age: 72 Year
  Sex: Female
  Weight: 51.7 kg

DRUGS (8)
  1. GERITOL [ASCORBIC ACID;CALCIUM PANTOTHENATE;CYANOCOBALAMIN;FERROUS SUL [Concomitant]
     Indication: ANAEMIA
     Dosage: 1 DOSAGE FORM
     Route: 065
  2. BABY ASPIRIN [Concomitant]
     Active Substance: ASPIRIN
     Indication: PRODUCT USED FOR UNKNOWN INDICATION
     Dosage: 81 MILLIGRAM
     Route: 065
  3. PLAQUENIL S [Concomitant]
     Active Substance: HYDROXYCHLOROQUINE SULFATE
     Indication: RHEUMATOID ARTHRITIS
     Dosage: 200 MILLIGRAM, BID
     Route: 065
  4. COREG [Concomitant]
     Active Substance: CARVEDILOL
     Indication: CARDIOMEGALY
     Dosage: 25 MILLIGRAM, BID
     Route: 065
  5. ABATACEPT [Suspect]
     Active Substance: ABATACEPT
     Indication: RHEUMATOID ARTHRITIS
     Dosage: 125 MILLIGRAM, QWK
     Route: 058
     Dates: start: 201904
  6. SYNTHROID [Concomitant]
     Active Substance: LEVOTHYROXINE SODIUM
     Indication: PRODUCT USED FOR UNKNOWN INDICATION
     Dosage: 0.05 MICROGRAM, DAILY
     Route: 065
  7. LIPITOR [Concomitant]
     Active Substance: ATORVASTATIN CALCIUM
     Indication: PRODUCT USED FOR UNKNOWN INDICATION
     Dosage: 5 MILLIGRAM
     Route: 065
  8. SODIUM [Concomitant]
     Active Substance: SODIUM
     Indication: PRODUCT USED FOR UNKNOWN INDICATION
     Dosage: UNK
     Route: 065

REACTIONS (7)
  - Device malfunction [Unknown]
  - Hypertension [Unknown]
  - Device operational issue [Unknown]
  - Pollakiuria [Unknown]
  - Spinal fracture [Unknown]
  - Kidney infection [Unknown]
  - Headache [Unknown]

NARRATIVE: CASE EVENT DATE: 20191228
